FAERS Safety Report 16325874 (Version 1)
Quarter: 2019Q2

REPORT INFORMATION
  Report Type: Spontaneous
  Country: US (occurrence: US)
  Receive Date: 20190517
  Receipt Date: 20190517
  Transmission Date: 20190711
  Serious: No
  Sender: FDA-Public Use
  Company Number: US-SANOFI-AVENTIS-2011SA005847

PATIENT
  Age: 75 Year
  Sex: Female

DRUGS (3)
  1. SOLOSTAR [Suspect]
     Active Substance: DEVICE
     Indication: TYPE 2 DIABETES MELLITUS
     Dates: start: 2010
  2. LANTUS [Suspect]
     Active Substance: INSULIN GLARGINE
     Indication: TYPE 2 DIABETES MELLITUS
     Dosage: 12 DF,QD
     Route: 058
     Dates: start: 2010
  3. LANTUS [Suspect]
     Active Substance: INSULIN GLARGINE
     Dosage: 30 U, HS
     Route: 065

REACTIONS (4)
  - Device operational issue [Unknown]
  - Injury associated with device [Recovered/Resolved]
  - Product complaint [Unknown]
  - Incorrect dose administered by device [Unknown]
